FAERS Safety Report 4767380-9 (Version None)
Quarter: 2005Q3

REPORT INFORMATION
  Report Type: 
  Country: None (occurrence: None)
  Receive Date: 20050909
  Receipt Date: 20050824
  Transmission Date: 20060218
  Serious: Yes (Hospitalization)
  Sender: FDA-Public Use
  Company Number: 169824

PATIENT
  Age: 58 Year
  Sex: Female

DRUGS (11)
  1. AVONEX [Suspect]
     Indication: SECONDARY PROGRESSIVE MULTIPLE SCLEROSIS
     Dosage: 30 UG;QW;IM
     Route: 030
     Dates: start: 19990505, end: 20030202
  2. ASPIRIN [Concomitant]
  3. HYOSCYAMINE [Concomitant]
  4. LASIX [Concomitant]
  5. DITROPAN [Concomitant]
  6. PROVIGIL [Concomitant]
  7. MAG-OX [Concomitant]
  8. PREDNISONE [Concomitant]
  9. KLOR-CON [Concomitant]
  10. LOPRESSOR [Concomitant]
  11. DIGOXIN [Concomitant]

REACTIONS (11)
  - ANGINA PECTORIS [None]
  - ARRHYTHMIA [None]
  - ATRIAL FIBRILLATION [None]
  - CARDIAC FAILURE CONGESTIVE [None]
  - DYSPNOEA [None]
  - HYPERTHYROIDISM [None]
  - MYOCARDIAL INFARCTION [None]
  - NAUSEA [None]
  - OEDEMA PERIPHERAL [None]
  - SYNCOPE [None]
  - THYROID DISORDER [None]
